FAERS Safety Report 6493490-4 (Version None)
Quarter: 2009Q4

REPORT INFORMATION
  Report Type: 
  Country: None (occurrence: None)
  Receive Date: 20091214
  Receipt Date: 20091201
  Transmission Date: 20100525
  Serious: Yes (Other)
  Sender: FDA-Public Use
  Company Number: KR-ELI_LILLY_AND_COMPANY-KR200912000362

PATIENT
  Age: 36 Year

DRUGS (1)
  1. CIALIS [Suspect]
     Indication: DISTURBANCE IN SEXUAL AROUSAL
     Dosage: 20 MG, TWICE MONTHLY ONLY WHEN HIS WIFE IS ON OVULATION PERIOD
     Route: 048
     Dates: start: 20090101

REACTIONS (3)
  - ABORTION SPONTANEOUS [None]
  - DRUG EXPOSURE DURING PREGNANCY [None]
  - OFF LABEL USE [None]
